FAERS Safety Report 19137070 (Version 1)
Quarter: 2021Q2

REPORT INFORMATION
  Report Type: Other
  Country: CA (occurrence: CA)
  Receive Date: 20210415
  Receipt Date: 20210415
  Transmission Date: 20210717
  Serious: Yes (Other)
  Sender: FDA-Public Use
  Company Number: CA-CELLTRION INC.-2021CA004712

PATIENT

DRUGS (15)
  1. AVAMYS [Concomitant]
     Active Substance: FLUTICASONE FUROATE
  2. RISEDRONATE SODIUM. [Concomitant]
     Active Substance: RISEDRONATE SODIUM
     Dosage: 35.0 MILLIGRAM
     Route: 065
  3. SENOKOT [Concomitant]
     Active Substance: SENNOSIDES
     Dosage: 2.8 MILLIGRAM, 2 EVERY 1 DAYS
     Route: 048
  4. ERGOCALCIFEROL. [Concomitant]
     Active Substance: ERGOCALCIFEROL
     Dosage: 2000.0 IU
     Route: 065
  5. FORMOTEROL FUMARATE;MOMETASONE FUROATE [Concomitant]
     Active Substance: FORMOTEROL FUMARATE\MOMETASONE FUROATE
  6. MAGNESIUM [Concomitant]
     Active Substance: MAGNESIUM
  7. METHYLPREDNISOLONE ACETATE. [Concomitant]
     Active Substance: METHYLPREDNISOLONE ACETATE
     Dosage: 1 EVERY 3 MONTHS
     Route: 065
  8. LACTOBACILLUS REUTERI [Concomitant]
     Active Substance: LACTOBACILLUS REUTERI
  9. CALCIUM [Concomitant]
     Active Substance: CALCIUM
  10. DEXILANT [Concomitant]
     Active Substance: DEXLANSOPRAZOLE
  11. PREDNISONE. [Concomitant]
     Active Substance: PREDNISONE
     Dosage: 3.0 MILLIGRAM
     Route: 065
  12. PRAVASTATIN. [Concomitant]
     Active Substance: PRAVASTATIN
  13. RESTASIS [Concomitant]
     Active Substance: CYCLOSPORINE
  14. RITUXIMAB (UNKNOWN) [Suspect]
     Active Substance: RITUXIMAB
     Indication: RHEUMATOID ARTHRITIS
     Dosage: 1000.0 MILLIGRAM
     Route: 042
  15. MONTELUKAST [Concomitant]
     Active Substance: MONTELUKAST SODIUM
     Dosage: 10.0 MILLIGRAM
     Route: 065

REACTIONS (6)
  - Abdominal distension [Unknown]
  - Osteoporosis [Unknown]
  - Tooth disorder [Unknown]
  - Joint swelling [Unknown]
  - Dyspnoea [Unknown]
  - Anxiety [Unknown]
